FAERS Safety Report 6111653-4 (Version None)
Quarter: 2009Q1

REPORT INFORMATION
  Report Type: 
  Country: None (occurrence: None)
  Receive Date: 20090311
  Receipt Date: 20090228
  Transmission Date: 20090719
  Serious: Yes (Other)
  Sender: FDA-Public Use
  Company Number: US-PFIZER INC-2009166860

PATIENT
  Sex: Male
  Weight: 66 kg

DRUGS (4)
  1. LIPITOR [Suspect]
     Indication: LIPIDS INCREASED
     Dosage: 20 MG, 1X/DAY
     Dates: start: 20030101
  2. AVODART [Concomitant]
     Dosage: 0.5 MG, 1X/DAY
  3. AVANDAMET [Concomitant]
     Dosage: UNK
  4. ZETIA [Concomitant]
     Dosage: 10 MG, 1X/DAY

REACTIONS (1)
  - SICK SINUS SYNDROME [None]
